FAERS Safety Report 5376137-X (Version None)
Quarter: 2007Q3

REPORT INFORMATION
  Report Type: 
  Country: None (occurrence: None)
  Receive Date: 20070702
  Receipt Date: 20070625
  Transmission Date: 20080115
  Serious: Yes (Hospitalization)
  Sender: FDA-Public Use
  Company Number: D0053745A

PATIENT
  Age: 46 Year
  Sex: Female

DRUGS (7)
  1. QUILONUM RETARD [Suspect]
     Indication: SCHIZOPHRENIA, RESIDUAL TYPE
     Dosage: 450MG UNKNOWN
     Route: 048
     Dates: start: 20060405
  2. RISPERDAL [Suspect]
     Indication: SCHIZOPHRENIA, RESIDUAL TYPE
     Route: 048
     Dates: start: 20060327, end: 20060604
  3. BELOC-ZOK [Concomitant]
     Dosage: 95MG PER DAY
     Route: 048
     Dates: start: 20020101
  4. DISALUNIL [Concomitant]
     Dosage: 12.5MG PER DAY
     Route: 048
     Dates: start: 20020101
  5. ENAHEXAL [Concomitant]
     Dosage: 20MG PER DAY
     Route: 048
     Dates: start: 20020101, end: 20060613
  6. SEROQUEL [Concomitant]
     Indication: SCHIZOPHRENIA, RESIDUAL TYPE
     Route: 048
  7. BENZODIAZEPIN [Concomitant]
     Indication: SCHIZOPHRENIA, RESIDUAL TYPE
     Route: 048

REACTIONS (1)
  - AKATHISIA [None]
